FAERS Safety Report 8880613 (Version 3)
Quarter: 2013Q4

REPORT INFORMATION
  Report Type: Spontaneous
  Country: US (occurrence: US)
  Receive Date: 20121101
  Receipt Date: 20131007
  Transmission Date: 20140711
  Serious: Yes (Other)
  Sender: FDA-Public Use
  Company Number: US-JNJFOC-20121014270

PATIENT
  Age: 36 Year
  Sex: Male

DRUGS (4)
  1. INFLIXIMAB, RECOMBINANT [Suspect]
     Indication: CROHN^S DISEASE
     Route: 042
  2. AZATHIOPRINE [Suspect]
     Indication: CROHN^S DISEASE
     Route: 065
  3. MESALAMINE [Suspect]
     Indication: CROHN^S DISEASE
     Route: 048
  4. MESALAMINE [Suspect]
     Indication: CROHN^S DISEASE
     Route: 061

REACTIONS (1)
  - Diffuse large B-cell lymphoma [Recovered/Resolved]
